FAERS Safety Report 7391274-6 (Version None)
Quarter: 2011Q2

REPORT INFORMATION
  Report Type: 
  Country: None (occurrence: None)
  Receive Date: 20110404
  Receipt Date: 20110326
  Transmission Date: 20111010
  Serious: Yes (Hospitalization)
  Sender: FDA-Public Use
  Company Number: BR-ASTELLAS-2011US001273

PATIENT
  Age: 5 Year
  Sex: Male
  Weight: 15 kg

DRUGS (2)
  1. PROGRAF [Suspect]
     Indication: TRANSPLANT
     Dosage: 1 MG, UNKNOWN/D
     Route: 065
     Dates: start: 20060722
  2. PREVENAR [Suspect]
     Indication: PRODUCT USED FOR UNKNOWN INDICATION
     Dosage: UNK
     Route: 065

REACTIONS (5)
  - DIARRHOEA [None]
  - LACTOSE INTOLERANCE [None]
  - WEIGHT GAIN POOR [None]
  - EAR INFECTION [None]
  - INFECTION [None]
